FAERS Safety Report 10518519 (Version 1)
Quarter: 2014Q4

REPORT INFORMATION
  Report Type: Spontaneous
  Country: US (occurrence: None)
  Receive Date: 20141014
  Receipt Date: 20141014
  Transmission Date: 20150528
  Serious: Yes (Death, Disabling, Other)
  Sender: FDA-Public Use
  Company Number: None

PATIENT
  Age: 58 Year
  Sex: Male
  Weight: 86.18 kg

DRUGS (1)
  1. TECFIDERA [Suspect]
     Active Substance: DIMETHYL FUMARATE
     Indication: MULTIPLE SCLEROSIS
     Dosage: 1 PILL  TWICE DAILY  TAKEN BY MOUTH
     Route: 048

REACTIONS (7)
  - Depression [None]
  - Feeling abnormal [None]
  - Mental status changes [None]
  - Paranoia [None]
  - Anxiety [None]
  - Memory impairment [None]
  - Nervous system disorder [None]

NARRATIVE: CASE EVENT DATE: 20141008
